APPROVED DRUG PRODUCT: CEFADROXIL
Active Ingredient: CEFADROXIL/CEFADROXIL HEMIHYDRATE
Strength: EQ 500MG BASE/5ML
Dosage Form/Route: FOR SUSPENSION;ORAL
Application: A065396 | Product #002 | TE Code: AB
Applicant: LUPIN LTD
Approved: Feb 21, 2008 | RLD: No | RS: Yes | Type: RX